FAERS Safety Report 12980981 (Version 1)
Quarter: 2016Q4

REPORT INFORMATION
  Report Type: Spontaneous
  Country: IT (occurrence: IT)
  Receive Date: 20161128
  Receipt Date: 20161128
  Transmission Date: 20170207
  Serious: Yes (Hospitalization)
  Sender: FDA-Public Use
  Company Number: PHHY2016IT159052

PATIENT
  Age: 22 Year
  Sex: Female

DRUGS (5)
  1. SEREUPIN [Suspect]
     Active Substance: PAROXETINE HYDROCHLORIDE
     Indication: DRUG ABUSE
     Dosage: UNK, ONCE/SINGLE
     Route: 048
     Dates: start: 20150130, end: 20150130
  2. FLUOXETINE [Suspect]
     Active Substance: FLUOXETINE HYDROCHLORIDE
     Indication: DRUG ABUSE
     Route: 048
     Dates: start: 20150130, end: 20150130
  3. XANAX [Suspect]
     Active Substance: ALPRAZOLAM
     Indication: DRUG ABUSE
     Route: 048
     Dates: start: 20150130, end: 20150130
  4. PROZAC [Suspect]
     Active Substance: FLUOXETINE HYDROCHLORIDE
     Indication: DRUG ABUSE
     Route: 048
     Dates: start: 20150130, end: 20150130
  5. EN [Suspect]
     Active Substance: DELORAZEPAM
     Indication: DEPRESSION
     Route: 048
     Dates: start: 20150130, end: 20150130

REACTIONS (3)
  - Drug abuse [Recovering/Resolving]
  - Dizziness postural [Recovering/Resolving]
  - Sopor [Recovering/Resolving]

NARRATIVE: CASE EVENT DATE: 20150130
